FAERS Safety Report 9056161 (Version 1)
Quarter: 2013Q1

REPORT INFORMATION
  Report Type: Spontaneous
  Country: DE (occurrence: DE)
  Receive Date: 20130205
  Receipt Date: 20130205
  Transmission Date: 20140127
  Serious: Yes (Other)
  Sender: FDA-Public Use
  Company Number: DE-PFIZER INC-2013047027

PATIENT
  Age: 73 Year
  Sex: Male

DRUGS (7)
  1. CORDAREX [Suspect]
     Indication: ATRIAL FIBRILLATION
     Dosage: UNK
     Route: 048
  2. ENALAPRIL [Concomitant]
     Dosage: UNK
  3. CARVEDILOL [Concomitant]
     Dosage: UNK
  4. MARCUMAR [Concomitant]
     Dosage: UNK
  5. TORASEMIDE [Concomitant]
     Dosage: UNK
  6. ALLOPURINOL [Concomitant]
     Dosage: UNK
  7. HUMALOG [Concomitant]
     Dosage: UNK

REACTIONS (2)
  - Gamma-glutamyltransferase increased [Unknown]
  - Blood alkaline phosphatase increased [Unknown]
